FAERS Safety Report 22184227 (Version 1)
Quarter: 2023Q2

REPORT INFORMATION
  Report Type: Spontaneous
  Country: FR (occurrence: FR)
  Receive Date: 20230407
  Receipt Date: 20230407
  Transmission Date: 20230721
  Serious: Yes (Death, Life-Threatening, Hospitalization, Disabling, Other)
  Sender: FDA-Public Use
  Company Number: None

PATIENT
  Age: 88 Year
  Sex: Male
  Weight: 77 kg

DRUGS (1)
  1. CAPECITABINE [Suspect]
     Active Substance: CAPECITABINE
     Indication: Neoplasm
     Route: 048
     Dates: start: 202202, end: 20220329

REACTIONS (3)
  - Pulmonary embolism [Recovered/Resolved with Sequelae]
  - Pyrexia [Recovering/Resolving]
  - Pneumonia fungal [Fatal]

NARRATIVE: CASE EVENT DATE: 20220220
